FAERS Safety Report 7902681-4 (Version None)
Quarter: 2011Q4

REPORT INFORMATION
  Report Type: 
  Country: None (occurrence: None)
  Receive Date: 20111108
  Receipt Date: 20111104
  Transmission Date: 20120403
  Serious: Yes (Other)
  Sender: FDA-Public Use
  Company Number: US-MERCK-1111USA00734

PATIENT
  Sex: Female

DRUGS (3)
  1. BONIVA [Suspect]
     Route: 065
     Dates: start: 20081201, end: 20091101
  2. FOSAMAX [Suspect]
     Route: 048
     Dates: start: 20080101, end: 20081201
  3. FOSAMAX [Suspect]
     Route: 048
     Dates: start: 19971201, end: 20080201

REACTIONS (2)
  - LOW TURNOVER OSTEOPATHY [None]
  - FEMUR FRACTURE [None]
